FAERS Safety Report 15598774 (Version 3)
Quarter: 2019Q1

REPORT INFORMATION
  Report Type: Report from Study
  Country: US (occurrence: US)
  Receive Date: 20181108
  Receipt Date: 20190201
  Transmission Date: 20190417
  Serious: Yes (Other)
  Sender: FDA-Public Use
  Company Number: US-INCYTE CORPORATION-2018IN010191

PATIENT

DRUGS (2)
  1. MORPHINE [Concomitant]
     Active Substance: MORPHINE
     Indication: PRODUCT USED FOR UNKNOWN INDICATION
     Route: 065
  2. JAKAFI [Suspect]
     Active Substance: RUXOLITINIB
     Indication: MYELOPROLIFERATIVE NEOPLASM
     Dosage: 10 MG, BID
     Route: 048
     Dates: start: 20180927

REACTIONS (6)
  - Off label use [Unknown]
  - Neuropathy peripheral [Unknown]
  - Disorientation [Unknown]
  - Product dose omission [Unknown]
  - Fatigue [Unknown]
  - Neuralgia [Unknown]

NARRATIVE: CASE EVENT DATE: 20180927
